FAERS Safety Report 4385495-4 (Version None)
Quarter: 2004Q2

REPORT INFORMATION
  Report Type: 
  Country: None (occurrence: None)
  Receive Date: 20040622
  Receipt Date: 20040614
  Transmission Date: 20050107
  Serious: Yes (Hospitalization, Other)
  Sender: FDA-Public Use
  Company Number: FRWYE823114JUN04

PATIENT
  Age: 37 Year
  Sex: Male

DRUGS (6)
  1. OXAZEPAM [Suspect]
     Route: 048
     Dates: start: 20040506
  2. ALCOHOL (ETHANOL) [Suspect]
     Route: 048
     Dates: end: 20040512
  3. GAVISCON [Suspect]
     Route: 048
  4. PENTASA [Suspect]
     Dosage: 500 MG 6X PER 1 DAY
     Route: 048
  5. SMECTA (ALUMINIUM HYDROXIDE MAGNESIUM CARBONATE GEL/ALUMINUM MAGNESIUM [Suspect]
     Dosage: 4 DOSE 1X PER 1 WK
     Route: 048
  6. VERATRAN (CLOTIAZEPAM) [Suspect]
     Dosage: 5 MG 1 X PER 1 DAY
     Route: 048
     Dates: end: 20040506

REACTIONS (4)
  - ALCOHOLIC PANCREATITIS [None]
  - DRUG WITHDRAWAL CONVULSIONS [None]
  - GAMMA-GLUTAMYLTRANSFERASE INCREASED [None]
  - SYNCOPE [None]
